FAERS Safety Report 7424289-X (Version None)
Quarter: 2011Q2

REPORT INFORMATION
  Report Type: 
  Country: None (occurrence: None)
  Receive Date: 20110419
  Receipt Date: 20110412
  Transmission Date: 20111010
  Serious: Yes (Other)
  Sender: FDA-Public Use
  Company Number: PL-PFIZER INC-2011046827

PATIENT
  Age: 41 Year
  Sex: Female
  Weight: 100 kg

DRUGS (6)
  1. MORPHINE [Concomitant]
     Dosage: UNK
     Route: 042
     Dates: start: 20110206, end: 20110307
  2. AMIKACIN [Concomitant]
     Dosage: UNK
     Route: 042
     Dates: start: 20110217, end: 20110227
  3. ZYVOX [Suspect]
     Indication: PNEUMONIA
     Dosage: 600 MG, 2X/DAY
     Route: 042
     Dates: start: 20110301, end: 20110308
  4. DOPAMINE [Concomitant]
     Dosage: UNK
     Route: 042
     Dates: start: 20110206, end: 20110309
  5. MIDAZOLAM [Concomitant]
     Dosage: UNK
     Route: 042
     Dates: start: 20110206
  6. FRAXIPARINE [Concomitant]
     Dosage: UNK
     Route: 058
     Dates: start: 20110206

REACTIONS (4)
  - ALANINE AMINOTRANSFERASE INCREASED [None]
  - ASPARTATE AMINOTRANSFERASE INCREASED [None]
  - COAGULATION FACTOR DECREASED [None]
  - RESPIRATORY TRACT HAEMORRHAGE [None]
